FAERS Safety Report 24641816 (Version 1)
Quarter: 2024Q4

REPORT INFORMATION
  Report Type: Spontaneous
  Country: US (occurrence: None)
  Receive Date: 20241120
  Receipt Date: 20241120
  Transmission Date: 20250114
  Serious: Yes (Hospitalization)
  Sender: Public
  Company Number: None

PATIENT
  Sex: Male

DRUGS (4)
  1. AMBRISENTAN [Suspect]
     Active Substance: AMBRISENTAN
     Indication: Pulmonary arterial hypertension
     Dosage: FREQUENCY : DAILY;?
     Route: 048
     Dates: start: 201908
  2. TADALAFIL [Suspect]
     Active Substance: TADALAFIL
     Indication: Pulmonary arterial hypertension
     Dosage: OTHER FREQUENCY : IN THE AM ;?
     Dates: start: 202105
  3. TREPROSTINIL [Suspect]
     Active Substance: TREPROSTINIL
  4. WINREVAIR [Concomitant]

REACTIONS (2)
  - Product use issue [None]
  - Hospitalisation [None]
